FAERS Safety Report 10745475 (Version 1)
Quarter: 2015Q1

REPORT INFORMATION
  Report Type: Spontaneous
  Country: US (occurrence: US)
  Receive Date: 20150128
  Receipt Date: 20150128
  Transmission Date: 20150721
  Serious: Yes (Other)
  Sender: FDA-Public Use
  Company Number: US-JNJFOC-20150115717

PATIENT
  Sex: Female
  Weight: 68.04 kg

DRUGS (6)
  1. BUDESONIDE. [Concomitant]
     Active Substance: BUDESONIDE
     Route: 065
  2. IMURAN [Suspect]
     Active Substance: AZATHIOPRINE
     Indication: HEPATITIS
     Route: 065
  3. DIPHENOXYLATE [Concomitant]
     Active Substance: DIPHENOXYLATE
     Indication: DIARRHOEA
     Dosage: ONE OR TWO PER DAY
     Route: 065
  4. REMICADE [Suspect]
     Active Substance: INFLIXIMAB
     Indication: COLITIS ULCERATIVE
     Route: 042
  5. XANAX [Concomitant]
     Active Substance: ALPRAZOLAM
     Route: 065
  6. DIPHENOXYLATE [Concomitant]
     Active Substance: DIPHENOXYLATE
     Indication: PAIN
     Dosage: ONE OR TWO PER DAY
     Route: 065

REACTIONS (3)
  - Hepatitis [Unknown]
  - Arthropathy [Not Recovered/Not Resolved]
  - Malaise [Unknown]
